FAERS Safety Report 12854320 (Version 2)
Quarter: 2016Q4

REPORT INFORMATION
  Report Type: Report from Study
  Country: None (occurrence: CO)
  Receive Date: 20161017
  Receipt Date: 20161021
  Transmission Date: 20170207
  Serious: Yes (Death, Hospitalization)
  Sender: FDA-Public Use
  Company Number: CO-ABBVIE-16K-036-1754727-00

PATIENT
  Age: 34 Year
  Sex: Female
  Weight: 50 kg

DRUGS (1)
  1. HUMIRA [Suspect]
     Active Substance: ADALIMUMAB
     Indication: CROHN^S DISEASE
     Route: 058
     Dates: start: 20120504, end: 20160916

REACTIONS (3)
  - Melaena [Not Recovered/Not Resolved]
  - Pneumonia aspiration [Fatal]
  - Haemoglobin abnormal [Unknown]

NARRATIVE: CASE EVENT DATE: 20160930
